FAERS Safety Report 17834817 (Version 1)
Quarter: 2020Q2

REPORT INFORMATION
  Report Type: Spontaneous
  Country: US (occurrence: US)
  Receive Date: 20200528
  Receipt Date: 20200528
  Transmission Date: 20200714
  Serious: Yes (Other)
  Sender: FDA-Public Use
  Company Number: None

PATIENT
  Age: 76 Year
  Sex: Male
  Weight: 78.7 kg

DRUGS (1)
  1. SUCCINYLCHOLINE [Suspect]
     Active Substance: SUCCINYLCHOLINE
     Indication: SURGERY
     Route: 042
     Dates: start: 20200526, end: 20200526

REACTIONS (4)
  - Cough [None]
  - Muscle contractions involuntary [None]
  - Drug ineffective [None]
  - Retching [None]

NARRATIVE: CASE EVENT DATE: 20200526
